FAERS Safety Report 9104001 (Version 2)
Quarter: 2013Q1

REPORT INFORMATION
  Report Type: Spontaneous
  Country: GB (occurrence: GB)
  Receive Date: 20130219
  Receipt Date: 20130226
  Transmission Date: 20140127
  Serious: Yes (Other)
  Sender: FDA-Public Use
  Company Number: GB-PFIZER INC-2013059928

PATIENT
  Age: 69 Year
  Sex: Female
  Weight: 109.55 kg

DRUGS (3)
  1. ATORVASTATIN [Suspect]
     Dosage: UNK
     Dates: start: 20121024, end: 20121121
  2. ATORVASTATIN [Suspect]
     Dosage: UNK
     Dates: start: 20130204
  3. BENDROFLUMETHIAZIDE [Concomitant]
     Dosage: UNK
     Dates: start: 20121024, end: 20121121

REACTIONS (1)
  - Drug intolerance [Recovered/Resolved]
